FAERS Safety Report 4876606-2 (Version None)
Quarter: 2005Q4

REPORT INFORMATION
  Report Type: 
  Country: None (occurrence: None)
  Receive Date: 20051206
  Receipt Date: 20051010
  Transmission Date: 20060501
  Serious: Yes (Hospitalization)
  Sender: FDA-Public Use
  Company Number: US_0510122715

PATIENT
  Age: 72 Year
  Sex: Female
  Weight: 89 kg

DRUGS (18)
  1. CYMBALTA [Suspect]
     Dates: end: 20050525
  2. MAGNESIUM OXIDE [Concomitant]
  3. LISINOPRIL [Concomitant]
  4. CADUET [Concomitant]
  5. FUROSEMIDE [Concomitant]
  6. GLUCOTROL XL [Concomitant]
  7. AVANDIA [Concomitant]
  8. APAP W/ HYDROCODONE [Concomitant]
  9. LEXAPRO [Concomitant]
  10. XALATAN [Concomitant]
  11. CLARITIN (LORARADINE) [Concomitant]
  12. CALCIUM WITH VITAMIN D [Concomitant]
  13. MULTI-VITAMIN [Concomitant]
  14. LANTUS [Concomitant]
  15. DETROL LA [Concomitant]
  16. AREDIA [Concomitant]
  17. LEVOXYL [Concomitant]
  18. PRILOSEC [Concomitant]

REACTIONS (4)
  - ABDOMINAL PAIN UPPER [None]
  - CONFUSIONAL STATE [None]
  - ERYTHEMA [None]
  - RECTAL HAEMORRHAGE [None]
